FAERS Safety Report 5007540-5 (Version None)
Quarter: 2006Q2

REPORT INFORMATION
  Report Type: 
  Country: None (occurrence: None)
  Receive Date: 20060517
  Receipt Date: 20060426
  Transmission Date: 20061013
  Serious: Yes (Death, Hospitalization, Other)
  Sender: FDA-Public Use
  Company Number: 2006058498

PATIENT
  Sex: Male
  Weight: 58.0604 kg

DRUGS (1)
  1. CELEBREX [Suspect]
     Indication: BONE PAIN

REACTIONS (12)
  - ALCOHOLISM [None]
  - ARRHYTHMIA [None]
  - ASTHENIA [None]
  - CARDIAC DISORDER [None]
  - CARDIAC FAILURE CONGESTIVE [None]
  - CARDIOMEGALY [None]
  - CARDIOMYOPATHY [None]
  - DEHYDRATION [None]
  - EJECTION FRACTION DECREASED [None]
  - FALL [None]
  - GASTROINTESTINAL DISORDER [None]
  - LOSS OF CONSCIOUSNESS [None]
